FAERS Safety Report 9278352 (Version 3)
Quarter: 2013Q3

REPORT INFORMATION
  Report Type: Report from Study
  Country: US (occurrence: US)
  Receive Date: 20130508
  Receipt Date: 20130923
  Transmission Date: 20140515
  Serious: Yes (Death, Hospitalization)
  Sender: FDA-Public Use
  Company Number: US-ROCHE-1221695

PATIENT
  Sex: Female

DRUGS (17)
  1. CELLCEPT [Suspect]
     Indication: RENAL TRANSPLANT
     Route: 048
  2. VALCYTE [Suspect]
     Indication: RENAL TRANSPLANT
     Route: 048
  3. VITAMIN C [Concomitant]
     Route: 048
  4. BETHANECHOL [Concomitant]
     Route: 048
  5. CARVIDOL [Concomitant]
     Dosage: WITH MEAL
     Route: 048
  6. CLONIDINE [Concomitant]
     Route: 048
  7. GENGRAF [Concomitant]
     Route: 048
  8. DOCUSATE SODIUM [Concomitant]
     Dosage: AS NEEDED
     Route: 048
  9. FUROSEMIDE [Concomitant]
     Route: 048
  10. GLIPIZIDE [Concomitant]
     Dosage: EVERY DAY BEFORE
     Route: 048
  11. LISINOPRIL [Concomitant]
     Route: 048
  12. PRAVASTATIN [Concomitant]
     Route: 048
  13. PYRIDOXINE [Concomitant]
     Route: 048
  14. RANITIDINE [Concomitant]
     Route: 048
  15. ULTRAM [Concomitant]
     Indication: PAIN
     Dosage: AS NEEDED
     Route: 048
  16. WARFARIN [Concomitant]
     Route: 048
  17. ALLOPURINOL [Concomitant]
     Route: 048

REACTIONS (2)
  - Craniocerebral injury [Fatal]
  - Shoulder arthroplasty [Unknown]
